FAERS Safety Report 21137314 (Version 1)
Quarter: 2022Q3

REPORT INFORMATION
  Report Type: Spontaneous
  Country: US (occurrence: None)
  Receive Date: 20220727
  Receipt Date: 20220727
  Transmission Date: 20221027
  Serious: No
  Sender: FDA-Public Use
  Company Number: None

PATIENT
  Age: 51 Year
  Sex: Female

DRUGS (1)
  1. COSENTYX [Suspect]
     Active Substance: SECUKINUMAB
     Indication: Product used for unknown indication
     Dosage: OTHER FREQUENCY : OTHER;?
     Route: 058
     Dates: start: 2022

REACTIONS (5)
  - Pyrexia [None]
  - Inflammation [None]
  - Hypersensitivity [None]
  - Functional gastrointestinal disorder [None]
  - Adverse drug reaction [None]

NARRATIVE: CASE EVENT DATE: 20220727
